FAERS Safety Report 7872859-7 (Version None)
Quarter: 2011Q4

REPORT INFORMATION
  Report Type: 
  Country: None (occurrence: None)
  Receive Date: 20111030
  Receipt Date: 20110426
  Transmission Date: 20120403
  Serious: No
  Sender: FDA-Public Use
  Company Number: US-AMGEN-USASP2011021745

PATIENT
  Age: 38 Year
  Sex: Male

DRUGS (1)
  1. ENBREL [Suspect]
     Indication: RHEUMATOID ARTHRITIS
     Dosage: 50 MG, QWK
     Dates: start: 20060101, end: 20110423

REACTIONS (6)
  - DECREASED APPETITE [None]
  - FATIGUE [None]
  - DEHYDRATION [None]
  - PARAESTHESIA [None]
  - DIARRHOEA [None]
  - VISION BLURRED [None]
